FAERS Safety Report 14614396 (Version 1)
Quarter: 2018Q1

REPORT INFORMATION
  Report Type: Spontaneous
  Country: US (occurrence: US)
  Receive Date: 20180308
  Receipt Date: 20180308
  Transmission Date: 20180509
  Serious: Yes (Other)
  Sender: FDA-Public Use
  Company Number: None

PATIENT
  Age: 79 Year
  Sex: Male
  Weight: 77.4 kg

DRUGS (6)
  1. NINLARO [Suspect]
     Active Substance: IXAZOMIB CITRATE
     Indication: PLASMA CELL MYELOMA
     Dosage: ?          OTHER FREQUENCY:EVERY WEEK;?
     Route: 048
     Dates: start: 20161116, end: 20180307
  2. REVLIMID [Concomitant]
     Active Substance: LENALIDOMIDE
  3. LISINOPRIL. [Concomitant]
     Active Substance: LISINOPRIL
  4. CARVEDILOL. [Concomitant]
     Active Substance: CARVEDILOL
  5. CREON [Concomitant]
     Active Substance: PANCRELIPASE AMYLASE\PANCRELIPASE LIPASE\PANCRELIPASE PROTEASE
  6. FUROSEMIDE. [Concomitant]
     Active Substance: FUROSEMIDE

REACTIONS (3)
  - Hypotension [None]
  - Fatigue [None]
  - Decreased appetite [None]
